FAERS Safety Report 23090542 (Version 2)
Quarter: 2023Q4

REPORT INFORMATION
  Report Type: Spontaneous
  Country: US (occurrence: US)
  Receive Date: 20231020
  Receipt Date: 20231026
  Transmission Date: 20240110
  Serious: Yes (Hospitalization)
  Sender: FDA-Public Use
  Company Number: US-Fresenius Medical Care Renal Therapies Group-FMC-2310-001129

PATIENT
  Age: 34 Year
  Sex: Female
  Weight: 85 kg

DRUGS (3)
  1. DELFLEX WITH DEXTROSE 1.5% LOW MAGNESIUM LOW CALCIUM [Suspect]
     Active Substance: CALCIUM CHLORIDE\DEXTROSE\MAGNESIUM CHLORIDE\SODIUM CHLORIDE\SODIUM LACTATE
     Indication: End stage renal disease
     Dosage: 7 DAYS PER WEEK, ESTIMATED DRY WEIGHT 58KG, CA 2.5 (MEQ/L), MG 0.5 (MEQ/L), DEXTROSE 1.5; 2.5; 4.25
     Route: 033
  2. DELFLEX WITH DEXTROSE 2.5% LOW MAGNESIUM LOW CALCIUM [Suspect]
     Active Substance: CALCIUM CHLORIDE\DEXTROSE\MAGNESIUM CHLORIDE\SODIUM CHLORIDE\SODIUM LACTATE
     Indication: End stage renal disease
     Dosage: 7 DAYS PER WEEK, ESTIMATED DRY WEIGHT 58KG, CA 2.5 (MEQ/L), MG 0.5 (MEQ/L), DEXTROSE 1.5; 2.5; 4.25
     Route: 033
  3. DELFLEX WITH DEXTROSE 4.25% LOW MAGNESIUM LOW CALCIUM [Suspect]
     Active Substance: CALCIUM CHLORIDE\DEXTROSE\MAGNESIUM CHLORIDE\SODIUM CHLORIDE\SODIUM LACTATE
     Indication: End stage renal disease
     Dosage: 7 DAYS PER WEEK, ESTIMATED DRY WEIGHT 58KG, CA 2.5 (MEQ/L), MG 0.5 (MEQ/L), DEXTROSE 1.5; 2.5; 4.25
     Route: 033

REACTIONS (1)
  - Peritonitis bacterial [Unknown]
